FAERS Safety Report 18235499 (Version 1)
Quarter: 2020Q3

REPORT INFORMATION
  Report Type: Spontaneous
  Country: US (occurrence: US)
  Receive Date: 20200905
  Receipt Date: 20200905
  Transmission Date: 20201103
  Serious: No
  Sender: FDA-Public Use
  Company Number: US-IPSEN BIOPHARMACEUTICALS, INC.-2020-15422

PATIENT
  Sex: Female

DRUGS (9)
  1. DYSPORT [Suspect]
     Active Substance: ABOBOTULINUMTOXINA
     Indication: SKIN WRINKLING
  2. DYSPORT [Suspect]
     Active Substance: ABOBOTULINUMTOXINA
     Indication: SKIN WRINKLING
  3. RESTYLANE REFYNE [Suspect]
     Active Substance: HYALURONIC ACID\LIDOCAINE
     Indication: SKIN WRINKLING
  4. DYSPORT [Suspect]
     Active Substance: ABOBOTULINUMTOXINA
     Indication: SKIN WRINKLING
     Dosage: 290 IU(FOREHEAD:30UNITS,GLABELLA:30UNITS,CROW^S FEET: 30UNITS EACH SIDE,DAO:10UNITS EACH SIDE,PLATYS
     Route: 065
     Dates: start: 20200819, end: 20200819
  5. DYSPORT [Suspect]
     Active Substance: ABOBOTULINUMTOXINA
     Indication: OFF LABEL USE
  6. DYSPORT [Suspect]
     Active Substance: ABOBOTULINUMTOXINA
     Indication: SKIN WRINKLING
  7. RESTYLANE REFYNE [Suspect]
     Active Substance: HYALURONIC ACID\LIDOCAINE
     Indication: SKIN WRINKLING
     Dosage: 0.5 ML (0.1 ML EACH SIDE), PHILRAL COLUMN (0.05 EACH SIDE) AND MARRIONETTE LINES  (0.1 ML EACH SIDE)
     Dates: start: 20200819
  8. RESTYLANE REFYNE [Suspect]
     Active Substance: HYALURONIC ACID\LIDOCAINE
     Indication: SKIN WRINKLING
  9. DYSPORT [Suspect]
     Active Substance: ABOBOTULINUMTOXINA
     Indication: SKIN WRINKLING

REACTIONS (3)
  - Off label use [Unknown]
  - Swelling [Not Recovered/Not Resolved]
  - Facial pain [Not Recovered/Not Resolved]

NARRATIVE: CASE EVENT DATE: 20200819
